FAERS Safety Report 12411109 (Version 1)
Quarter: 2016Q2

REPORT INFORMATION
  Report Type: Spontaneous
  Country: US (occurrence: None)
  Receive Date: 20160526
  Receipt Date: 20160526
  Transmission Date: 20160815
  Serious: Yes (Disabling)
  Sender: FDA-Public Use
  Company Number: None

PATIENT
  Age: 63 Year
  Sex: Female
  Weight: 54.43 kg

DRUGS (9)
  1. ESTRADIOL. [Concomitant]
     Active Substance: ESTRADIOL
  2. VITAMIN D [Concomitant]
     Active Substance: CHOLECALCIFEROL
  3. FOSAMAX [Suspect]
     Active Substance: ALENDRONATE SODIUM
     Indication: OSTEOPENIA
     Dosage: 1 PILL P.O. ONCE WEEKLY
     Route: 048
     Dates: start: 20050531, end: 2007
  4. CALCIUM [Concomitant]
     Active Substance: CALCIUM
  5. CITRACAL [Concomitant]
     Active Substance: CALCIUM CITRATE
  6. PROMETRIUM [Concomitant]
     Active Substance: PROGESTERONE
  7. CULTURELLE [Concomitant]
     Active Substance: LACTOBACILLUS RHAMNOSUS
  8. FOSAMAX [Suspect]
     Active Substance: ALENDRONATE SODIUM
     Indication: OSTEOPOROSIS
     Dosage: 1 PILL P.O. ONCE WEEKLY
     Route: 048
     Dates: start: 20050531, end: 2007
  9. ALPRAZOLAM. [Concomitant]
     Active Substance: ALPRAZOLAM

REACTIONS (2)
  - Bone pain [None]
  - Pain [None]

NARRATIVE: CASE EVENT DATE: 200910
